FAERS Safety Report 22331938 (Version 1)
Quarter: 2023Q2

REPORT INFORMATION
  Report Type: Spontaneous
  Country: IL (occurrence: IL)
  Receive Date: 20230517
  Receipt Date: 20230517
  Transmission Date: 20230721
  Serious: Yes (Hospitalization)
  Sender: FDA-Public Use
  Company Number: IL-PFIZER INC-PV202300085720

PATIENT
  Age: 80 Year

DRUGS (2)
  1. TAFAMIDIS MEGLUMINE [Suspect]
     Active Substance: TAFAMIDIS MEGLUMINE
     Dosage: UNK
     Dates: start: 202303
  2. ROSUVASTATIN [Concomitant]
     Active Substance: ROSUVASTATIN

REACTIONS (3)
  - Acute hepatic failure [Recovered/Resolved]
  - Blood bilirubin increased [Recovered/Resolved]
  - Cholelithiasis [Recovered/Resolved]
